FAERS Safety Report 4724860-X (Version None)
Quarter: 2005Q3

REPORT INFORMATION
  Report Type: 
  Country: None (occurrence: None)
  Receive Date: 20050720
  Receipt Date: 20050720
  Transmission Date: 20060218
  Serious: Yes (Life-Threatening)
  Sender: FDA-Public Use
  Company Number: None

PATIENT
  Age: 43 Year
  Sex: Male

DRUGS (3)
  1. GATIFLOXACIN [Suspect]
     Indication: INFECTION
     Dosage: 200 MG    DAILY   ORAL
     Route: 048
     Dates: start: 20041111, end: 20041115
  2. GATIFLOXACIN [Suspect]
     Indication: NECROSIS
     Dosage: 200 MG    DAILY   ORAL
     Route: 048
     Dates: start: 20041111, end: 20041115
  3. NPH AND REGULAR INSULIN [Concomitant]

REACTIONS (1)
  - HYPOGLYCAEMIA [None]
